FAERS Safety Report 5197668-1 (Version None)
Quarter: 2007Q1

REPORT INFORMATION
  Report Type: 
  Country: None (occurrence: None)
  Receive Date: 20070103
  Receipt Date: 20070102
  Transmission Date: 20070707
  Serious: Yes (Death, Life-Threatening, Hospitalization, Other)
  Sender: FDA-Public Use
  Company Number: US-ABBOTT-06R-163-0328558-00

PATIENT
  Sex: Male
  Weight: 0.92 kg

DRUGS (1)
  1. SURVANTA INTRATRACHEAL SUSPENSION [Suspect]
     Indication: ACUTE RESPIRATORY DISTRESS SYNDROME

REACTIONS (4)
  - DEATH [None]
  - INTRAVENTRICULAR HAEMORRHAGE NEONATAL [None]
  - PULMONARY HAEMORRHAGE [None]
  - RESPIRATORY FAILURE [None]
